FAERS Safety Report 4852876-1 (Version None)
Quarter: 2005Q4

REPORT INFORMATION
  Report Type: 
  Country: None (occurrence: None)
  Receive Date: 20051214
  Receipt Date: 20051206
  Transmission Date: 20060501
  Serious: Yes (Hospitalization)
  Sender: FDA-Public Use
  Company Number: 2005CG02008

PATIENT
  Age: 79 Year
  Sex: Male

DRUGS (4)
  1. NEXIUM [Suspect]
     Route: 048
     Dates: start: 20050916, end: 20051008
  2. TRIATEC FAIBLE [Suspect]
     Route: 048
     Dates: end: 20051008
  3. CORDARONE [Concomitant]
     Indication: ARRHYTHMIA
     Dates: start: 20050801
  4. CORDARONE [Concomitant]
     Indication: ATRIAL FIBRILLATION
     Dates: start: 20050801

REACTIONS (5)
  - AGRANULOCYTOSIS [None]
  - HAEMATEMESIS [None]
  - HAEMOGLOBIN DECREASED [None]
  - PLATELET COUNT DECREASED [None]
  - RED BLOOD CELL COUNT DECREASED [None]
